FAERS Safety Report 8813339 (Version 1)
Quarter: 2012Q4

REPORT INFORMATION
  Report Type: 
  Country: US (occurrence: US)
  Receive Date: 20120927
  Receipt Date: 20120927
  Transmission Date: 20130627
  Serious: No
  Sender: FDA-Public Use
  Company Number: US-AMGEN-USASP2012047839

PATIENT
  Sex: Female

DRUGS (5)
  1. PROLIA [Suspect]
     Indication: OSTEOPOROSIS POSTMENOPAUSAL
     Dates: start: 20120523
  2. COUMADIN /00014802/ [Concomitant]
  3. TYLENOL 3                            /00020001/ [Concomitant]
  4. DIOVAN [Concomitant]
  5. THYROID [Concomitant]

REACTIONS (5)
  - Musculoskeletal pain [Not Recovered/Not Resolved]
  - Insomnia [Unknown]
  - Myalgia [Not Recovered/Not Resolved]
  - Hypersensitivity [Unknown]
  - Pain in extremity [Not Recovered/Not Resolved]
